FAERS Safety Report 6024987-9 (Version None)
Quarter: 2008Q4

REPORT INFORMATION
  Report Type: 
  Country: None (occurrence: None)
  Receive Date: 20081222
  Receipt Date: 20080916
  Transmission Date: 20090506
  Serious: No
  Sender: FDA-Public Use
  Company Number: ALL1-2008-02638

PATIENT
  Age: 16 Year
  Sex: Male
  Weight: 74.8 kg

DRUGS (4)
  1. VYVANSE [Suspect]
     Indication: ATTENTION DEFICIT/HYPERACTIVITY DISORDER
     Dosage: 50 MG, 1X/DAY:QD, ORAL; 70 MG, 1X/DAY:QD, ORAL; 50 MG, 1X/DAY:QD, ORAL
     Route: 048
     Dates: start: 20080701, end: 20080701
  2. VYVANSE [Suspect]
     Indication: ATTENTION DEFICIT/HYPERACTIVITY DISORDER
     Dosage: 50 MG, 1X/DAY:QD, ORAL; 70 MG, 1X/DAY:QD, ORAL; 50 MG, 1X/DAY:QD, ORAL
     Route: 048
     Dates: start: 20080701, end: 20080801
  3. VYVANSE [Suspect]
     Indication: ATTENTION DEFICIT/HYPERACTIVITY DISORDER
     Dosage: 50 MG, 1X/DAY:QD, ORAL; 70 MG, 1X/DAY:QD, ORAL; 50 MG, 1X/DAY:QD, ORAL
     Route: 048
     Dates: start: 20080910
  4. ZOLOFT /01011401/ (SERTRALINE) CAPSULE [Concomitant]

REACTIONS (3)
  - ANGER [None]
  - IRRITABILITY [None]
  - OFF LABEL USE [None]
